FAERS Safety Report 14524055 (Version 1)
Quarter: 2018Q1

REPORT INFORMATION
  Report Type: Report from Study
  Country: None (occurrence: TN)
  Receive Date: 20180213
  Receipt Date: 20180213
  Transmission Date: 20180509
  Serious: Yes (Death, Hospitalization, Other)
  Sender: FDA-Public Use
  Company Number: TN-ABBVIE-18K-160-2253303-00

PATIENT
  Age: 57 Year
  Sex: Male

DRUGS (2)
  1. HUMIRA [Suspect]
     Active Substance: ADALIMUMAB
     Indication: RHEUMATOID ARTHRITIS
     Route: 058
     Dates: start: 20170508, end: 20170822
  2. SALAZOPYRINE [Concomitant]
     Active Substance: SULFASALAZINE
     Indication: RHEUMATOID ARTHRITIS

REACTIONS (5)
  - Decreased appetite [Fatal]
  - Gastrointestinal inflammation [Fatal]
  - Dyspnoea [Fatal]
  - Leukaemia [Fatal]
  - Weight decreased [Fatal]

NARRATIVE: CASE EVENT DATE: 201712
